FAERS Safety Report 21658690 (Version 7)
Quarter: 2023Q2

REPORT INFORMATION
  Report Type: Report from Study
  Country: CA (occurrence: CA)
  Receive Date: 20221129
  Receipt Date: 20230516
  Transmission Date: 20230722
  Serious: Yes (Other)
  Sender: FDA-Public Use
  Company Number: CA-GILEAD-2022-0597826

PATIENT
  Age: 69 Year
  Sex: Female

DRUGS (36)
  1. SACITUZUMAB GOVITECAN-HZIY [Suspect]
     Active Substance: SACITUZUMAB GOVITECAN-HZIY
     Indication: Triple negative breast cancer
     Dosage: 700 MG
     Route: 042
     Dates: start: 20220923, end: 20230428
  2. SACITUZUMAB GOVITECAN-HZIY [Suspect]
     Active Substance: SACITUZUMAB GOVITECAN-HZIY
     Dosage: UNK
     Route: 042
  3. BENADRYL [Suspect]
     Active Substance: DIPHENHYDRAMINE HYDROCHLORIDE
     Indication: Product used for unknown indication
     Dosage: 50 MG  (PRE-MEDICATION PRIOR TO TRODELVY)
     Route: 042
  4. ACETAMINOPHEN [Concomitant]
     Active Substance: ACETAMINOPHEN
     Dosage: 650 MG  (PRE-MEDICATION PRIOR TO TRODELVY)
     Route: 048
  5. ACETAMINOPHEN [Concomitant]
     Active Substance: ACETAMINOPHEN
     Dosage: 650 MG PO (PRE-MEDICATION PRIOR TO TRODELVY)
  6. ACETAMINOPHEN [Concomitant]
     Active Substance: ACETAMINOPHEN
     Dosage: 650 MG PO (PRE-MEDICATION PRIOR TO TRODELVY)
  7. ACETAMINOPHEN [Concomitant]
     Active Substance: ACETAMINOPHEN
     Dosage: 650 MG PO (PRE-MEDICATION PRIOR TO TRODELVY)
  8. ASCORBIC ACID [Concomitant]
     Active Substance: ASCORBIC ACID
     Dosage: 500 MG
  9. ASCORBIC ACID [Concomitant]
     Active Substance: ASCORBIC ACID
     Dosage: 500 MG
  10. ASCORBIC ACID [Concomitant]
     Active Substance: ASCORBIC ACID
     Dosage: 500 MG
  11. ASCORBIC ACID [Concomitant]
     Active Substance: ASCORBIC ACID
     Dosage: 500 MG
  12. VITAMIN D3 [Concomitant]
     Active Substance: CHOLECALCIFEROL
     Dosage: 1000 IU
  13. VITAMIN D3 [Concomitant]
     Active Substance: CHOLECALCIFEROL
     Dosage: 1000 IUI
  14. VITAMIN D3 [Concomitant]
     Active Substance: CHOLECALCIFEROL
     Dosage: 1000 IUI
  15. DEXAMETHASONE [Concomitant]
     Active Substance: DEXAMETHASONE
     Dosage: 4 MG (PRE-MEDICATION PRIOR TO TRODELVY)
     Route: 048
  16. DEXAMETHASONE [Concomitant]
     Active Substance: DEXAMETHASONE
     Dosage: 4 MG PO (PRE-MEDICATION PRIOR TO TRODELVY)
  17. DEXAMETHASONE [Concomitant]
     Active Substance: DEXAMETHASONE
     Dosage: 4 MG PO (PRE-MEDICATION PRIOR TO TRODELVY)
  18. DEXAMETHASONE [Concomitant]
     Active Substance: DEXAMETHASONE
     Dosage: 4 MG PO (PRE-MEDICATION PRIOR TO TRODELVY)
  19. FUROSEMIDE [Concomitant]
     Active Substance: FUROSEMIDE
     Dosage: 20 MG
  20. FUROSEMIDE [Concomitant]
     Active Substance: FUROSEMIDE
     Dosage: 20 MG
  21. FUROSEMIDE [Concomitant]
     Active Substance: FUROSEMIDE
     Dosage: 20 MG
  22. FUROSEMIDE [Concomitant]
     Active Substance: FUROSEMIDE
     Dosage: 20 MG PO (PRE-MEDICATION PRIOR TO TRODELVY)
  23. HYDROMORPHONE [Concomitant]
     Active Substance: HYDROMORPHONE
     Dosage: 1 ML
  24. HYDROMORPHONE [Concomitant]
     Active Substance: HYDROMORPHONE
     Dosage: 3 MG
  25. HYDROMORPHONE [Concomitant]
     Active Substance: HYDROMORPHONE
     Dosage: 1 MG PO (PRE-MEDICATION PRIOR TO TRODELVY)
  26. HYDROMORPHONE [Concomitant]
     Active Substance: HYDROMORPHONE
     Dosage: 1 MG PO (PRE-MEDICATION PRIOR TO TRODELVY)
  27. HYDROMORPHONE [Concomitant]
     Active Substance: HYDROMORPHONE
     Dosage: 3 MG PO (PRE-MEDICATION PRIOR TO TRODELVY)
  28. HYDROMORPHONE [Concomitant]
     Active Substance: HYDROMORPHONE
     Dosage: 1 ML PO (PRE-MEDICATION PRIOR TO TRODELVY)
  29. MAGNESIUM [Concomitant]
     Active Substance: MAGNESIUM
     Dosage: 150 MG
  30. MAGNESIUM [Concomitant]
     Active Substance: MAGNESIUM
     Dosage: 150 MG
  31. MAGNESIUM [Concomitant]
     Active Substance: MAGNESIUM
     Dosage: 150 MG
  32. MAGNESIUM [Concomitant]
     Active Substance: MAGNESIUM
     Dosage: 150 ML
  33. FASENRA [Concomitant]
     Active Substance: BENRALIZUMAB
  34. DIPHENHYDRAMINE [Concomitant]
     Active Substance: DIPHENHYDRAMINE
     Dosage: 50 MG PIV (PRE-MEDICATION PRIOR TO TRODELVY)
  35. DIPHENHYDRAMINE [Concomitant]
     Active Substance: DIPHENHYDRAMINE
     Dosage: 50 MG PIV (PRE-MEDICATION PRIOR TO TRODELVY)
  36. DIPHENHYDRAMINE [Concomitant]
     Active Substance: DIPHENHYDRAMINE
     Dosage: 50 MG PIV (PRE-MEDICATION PRIOR TO TRODELVY)

REACTIONS (12)
  - Synovial cyst [Recovering/Resolving]
  - Disease progression [Not Recovered/Not Resolved]
  - Feeling abnormal [Unknown]
  - Somnolence [Unknown]
  - Weight fluctuation [Not Recovered/Not Resolved]
  - Liver disorder [Unknown]
  - Hypertension [Not Recovered/Not Resolved]
  - Heart rate increased [Recovered/Resolved]
  - Off label use [Not Recovered/Not Resolved]
  - Weight fluctuation [Unknown]
  - Hypertension [Unknown]
  - Heart rate increased [Unknown]

NARRATIVE: CASE EVENT DATE: 20220923
